FAERS Safety Report 25691525 (Version 2)
Quarter: 2025Q3

REPORT INFORMATION
  Report Type: Report from Study
  Country: MX (occurrence: MX)
  Receive Date: 20250818
  Receipt Date: 20250901
  Transmission Date: 20251020
  Serious: Yes (Other)
  Sender: NOVARTIS
  Company Number: MX-002147023-NVSC2024MX245651

PATIENT
  Age: 53 Year
  Sex: Female
  Weight: 103 kg

DRUGS (9)
  1. IMATINIB [Suspect]
     Active Substance: IMATINIB
     Indication: Chronic myeloid leukaemia
     Dosage: 2 DOSAGE FORM, (2 OF 100 MG) BID (IN THE MORNING AND AT NIGHT)
     Route: 048
     Dates: start: 201906, end: 202410
  2. TASIGNA [Suspect]
     Active Substance: NILOTINIB
     Indication: Chronic myeloid leukaemia
     Dosage: 1 DOSAGE FORM, BID (IN THE MORNING AND AT NIGHT)
     Route: 048
     Dates: start: 202410
  3. TASIGNA [Suspect]
     Active Substance: NILOTINIB
     Dosage: 2 DOSAGE FORM, BID (200MG)
     Route: 048
     Dates: start: 202410, end: 202507
  4. TASIGNA [Suspect]
     Active Substance: NILOTINIB
     Dosage: 2 DOSAGE FORM, QD (200MG)
     Route: 048
     Dates: start: 20250718
  5. METFORMIN HYDROCHLORIDE\VILDAGLIPTIN [Suspect]
     Active Substance: METFORMIN HYDROCHLORIDE\VILDAGLIPTIN
     Indication: Blood glucose increased
     Dosage: 1 DOSAGE FORM, (1 OF 850/80 MG) BID
     Route: 048
     Dates: start: 2019
  6. LOSARTAN [Concomitant]
     Active Substance: LOSARTAN
     Indication: Hypertension
     Dosage: 1 DOSAGE FORM, BID (50MG)
     Route: 048
     Dates: start: 2015
  7. BEZAFIBRATE [Concomitant]
     Active Substance: BEZAFIBRATE
     Indication: Blood triglycerides
     Dosage: 1 DOSAGE FORM, QD (200MG) (TABLET)
     Route: 048
     Dates: start: 2019
  8. CLONAZEPAM [Concomitant]
     Active Substance: CLONAZEPAM
     Indication: Sleep disorder
     Dosage: 1 DOSAGE FORM, QD (TABLET)
     Route: 048
     Dates: start: 2000
  9. FLUOXETINE [Concomitant]
     Active Substance: FLUOXETINE HYDROCHLORIDE
     Indication: Depression
     Dosage: 1 DOSAGE FORM, QD  (TABLET)
     Route: 048
     Dates: start: 2000

REACTIONS (6)
  - Blood glucose increased [Unknown]
  - Glycosylated haemoglobin increased [Unknown]
  - Alopecia [Not Recovered/Not Resolved]
  - Malaise [Not Recovered/Not Resolved]
  - Arthralgia [Not Recovered/Not Resolved]
  - Skin exfoliation [Unknown]

NARRATIVE: CASE EVENT DATE: 20190601
